FAERS Safety Report 6462375-1 (Version None)
Quarter: 2009Q4

REPORT INFORMATION
  Report Type: 
  Country: None (occurrence: None)
  Receive Date: 20091130
  Receipt Date: 20091028
  Transmission Date: 20100525
  Serious: No
  Sender: FDA-Public Use
  Company Number: US-BAYER-200938705NA

PATIENT
  Age: 55 Year
  Sex: Male
  Weight: 95 kg

DRUGS (4)
  1. ULTRAVIST 150 [Suspect]
     Indication: ANGIOGRAM
     Dosage: TOTAL DAILY DOSE: 145 ML  UNIT DOSE: 200 ML
     Route: 042
     Dates: start: 20091028, end: 20091028
  2. LIPITOR [Concomitant]
  3. ASPIRIN [Concomitant]
  4. COLACE [Concomitant]

REACTIONS (1)
  - URTICARIA [None]
